FAERS Safety Report 8189722-7 (Version None)
Quarter: 2012Q1

REPORT INFORMATION
  Report Type: 
  Country: None (occurrence: None)
  Receive Date: 20120221
  Receipt Date: 20120119
  Transmission Date: 20120608
  Serious: No
  Sender: FDA-Public Use
  Company Number: 1000027308

PATIENT
  Age: 30 Year
  Sex: Male

DRUGS (2)
  1. VIIBRYD [Suspect]
     Dosage: 20 MG (20 MG,1 IN 1 D)
  2. VIIBRYD [Suspect]
     Dosage: 40 MG (40 MG,1 IN 1 D)

REACTIONS (1)
  - CHEST PAIN [None]
